FAERS Safety Report 20046478 (Version 2)
Quarter: 2021Q4

REPORT INFORMATION
  Report Type: Spontaneous
  Country: US (occurrence: US)
  Receive Date: 20211109
  Receipt Date: 20211109
  Transmission Date: 20220303
  Serious: Yes (Hospitalization)
  Sender: FDA-Public Use
  Company Number: US-NOVEN PHARMACEUTICALS, INC.-2021-NOV-US003887

PATIENT
  Age: 39 Year
  Sex: Male

DRUGS (3)
  1. ESTRADIOL [Suspect]
     Active Substance: ESTRADIOL
     Indication: Libido increased
     Dosage: 2 MG, DAILY
     Route: 065
  2. ESTRADIOL [Suspect]
     Active Substance: ESTRADIOL
     Indication: Sexual dysfunction
  3. DUTASTERIDE [Suspect]
     Active Substance: DUTASTERIDE
     Indication: Antiandrogen therapy
     Dosage: 0.5 MG DAILY
     Route: 065

REACTIONS (5)
  - Psychotic disorder [Recovering/Resolving]
  - Pulmonary embolism [Recovered/Resolved]
  - Self-medication [Recovered/Resolved]
  - Prescription drug used without a prescription [Recovered/Resolved]
  - Intentional product use issue [Recovered/Resolved]
